FAERS Safety Report 9263706 (Version 3)
Quarter: 2013Q2

REPORT INFORMATION
  Report Type: Spontaneous
  Country: JP (occurrence: JP)
  Receive Date: 20130430
  Receipt Date: 20130529
  Transmission Date: 20140414
  Serious: Yes (Hospitalization)
  Sender: FDA-Public Use
  Company Number: PHHY2013JP041061

PATIENT
  Age: 74 Year
  Sex: Male

DRUGS (9)
  1. BENSERAZIDE, LEVODOPA [Suspect]
     Dosage: 300 MG/DAY
     Route: 048
  2. BENSERAZIDE, LEVODOPA [Suspect]
     Dosage: 750 MG/DAY
     Route: 048
  3. BENSERAZIDE, LEVODOPA [Suspect]
     Dosage: 1050 MG/DAY
     Route: 048
  4. BENSERAZIDE, LEVODOPA [Suspect]
     Dosage: 300 MG, DAILY
     Route: 048
  5. ROPINIROLE [Suspect]
     Dosage: 6 MG, DAILY
  6. ENTACAPONE [Suspect]
     Dosage: 600 MG, DAILY
     Route: 048
  7. LEVODOPA [Suspect]
     Indication: PARKINSON^S DISEASE
     Dosage: 25 MG/DAY
  8. LEVODOPA [Suspect]
     Dosage: 100 MG/DAY
     Route: 042
  9. AMANTADINE [Concomitant]
     Dosage: 150 MG/DAY

REACTIONS (14)
  - Parkinsonism [Recovering/Resolving]
  - Oromandibular dystonia [Recovering/Resolving]
  - Glossoptosis [Recovering/Resolving]
  - Pseudobulbar palsy [Recovering/Resolving]
  - Progressive supranuclear palsy [Recovering/Resolving]
  - Akinesia [Recovering/Resolving]
  - Muscle rigidity [Recovering/Resolving]
  - Resting tremor [Recovering/Resolving]
  - Gastric fistula [Recovering/Resolving]
  - Reflexes abnormal [Recovering/Resolving]
  - Angiopathy [Recovering/Resolving]
  - Muscle contracture [Recovering/Resolving]
  - Cerebral atrophy [Recovering/Resolving]
  - Overdose [Recovering/Resolving]
